FAERS Safety Report 18293966 (Version 4)
Quarter: 2020Q4

REPORT INFORMATION
  Report Type: Report from Study
  Country: None (occurrence: US)
  Receive Date: 20200922
  Receipt Date: 20201221
  Transmission Date: 20210113
  Serious: Yes (Hospitalization)
  Sender: FDA-Public Use
  Company Number: US-ABBVIE-20K-163-3451264-00

PATIENT
  Age: 58 Year
  Sex: Female

DRUGS (3)
  1. VITAMIN C [Concomitant]
     Active Substance: ASCORBIC ACID
     Indication: PRODUCT USED FOR UNKNOWN INDICATION
  2. HUMIRA [Suspect]
     Active Substance: ADALIMUMAB
     Indication: UVEITIS
     Dosage: CITRATE FREE
     Route: 058
  3. HUMIRA [Suspect]
     Active Substance: ADALIMUMAB
     Dosage: CITRATE FREE
     Route: 058

REACTIONS (21)
  - Blood creatinine increased [Unknown]
  - Rheumatoid arthritis [Not Recovered/Not Resolved]
  - Gastric infection [Unknown]
  - Hospitalisation [Unknown]
  - Oesophageal disorder [Unknown]
  - Gastritis [Unknown]
  - Helicobacter infection [Unknown]
  - Condition aggravated [Unknown]
  - Gastrointestinal disorder [Unknown]
  - Urinary tract infection [Recovered/Resolved]
  - Uveitis [Not Recovered/Not Resolved]
  - Urinary tract infection [Recovered/Resolved]
  - Urinary incontinence [Not Recovered/Not Resolved]
  - General symptom [Unknown]
  - Vomiting [Unknown]
  - Asthenia [Unknown]
  - Colitis ulcerative [Unknown]
  - Dyspnoea [Unknown]
  - Oral discomfort [Not Recovered/Not Resolved]
  - Oesophagitis [Unknown]
  - Helicobacter infection [Recovered/Resolved]

NARRATIVE: CASE EVENT DATE: 201912
